FAERS Safety Report 10462021 (Version 4)
Quarter: 2014Q3

REPORT INFORMATION
  Report Type: Report from Study
  Country: FR (occurrence: FR)
  Receive Date: 20140918
  Receipt Date: 20140924
  Transmission Date: 20150326
  Serious: Yes (Death, Life-Threatening, Hospitalization)
  Sender: FDA-Public Use
  Company Number: FR-009507513-1406FRA007523

PATIENT
  Age: 80 Year
  Sex: Male
  Weight: 66 kg

DRUGS (16)
  1. PEMBROLIZUMAB. [Suspect]
     Active Substance: PEMBROLIZUMAB
     Dosage: 10 MG/KG, Q3W, DOSE REPORTED: 100 (UNIT NOT PROVIDED)
     Route: 042
     Dates: start: 20140417, end: 20140417
  2. NERISONE [Concomitant]
     Active Substance: DIFLUCORTOLONE VALERATE
     Indication: PRURITUS
     Dosage: 1 DF (1 APPLICATION), BID
     Route: 061
     Dates: start: 20140218
  3. CONTRAMAL [Concomitant]
     Active Substance: TRAMADOL HYDROCHLORIDE
     Indication: BACK PAIN
     Dosage: 50 MG, QD
     Route: 048
     Dates: start: 20140411
  4. SOTALEX [Concomitant]
     Active Substance: SOTALOL
     Indication: HYPERTENSION
     Dosage: 1 DF (1 TABLET), QD
     Route: 048
     Dates: start: 200301
  5. LESCOL [Concomitant]
     Active Substance: FLUVASTATIN SODIUM
     Indication: DYSLIPIDAEMIA
     Dosage: 1 DF (1 TABLET), QD
     Route: 048
     Dates: start: 200301
  6. PEMBROLIZUMAB. [Suspect]
     Active Substance: PEMBROLIZUMAB
     Dosage: 10 MG/KG, Q3W, DOSE REPORTED: 100 (UNIT NOT PROVIDED)
     Route: 042
     Dates: start: 20140506, end: 20140527
  7. PREVISCAN [Concomitant]
     Active Substance: FLUINDIONE
     Indication: ATRIAL FIBRILLATION
     Dosage: 5 MG, QD
     Route: 048
     Dates: start: 20140414
  8. PLAVIX [Concomitant]
     Active Substance: CLOPIDOGREL BISULFATE
     Indication: ISCHAEMIC STROKE
     Dosage: 1 DF (1 TABLET), QD
     Route: 048
     Dates: start: 200301
  9. LASILIX [Concomitant]
     Active Substance: FUROSEMIDE
     Indication: ATRIAL FIBRILLATION
     Dosage: 40 MG, QD
     Route: 048
     Dates: start: 20140414
  10. PEMBROLIZUMAB. [Suspect]
     Active Substance: PEMBROLIZUMAB
     Indication: MALIGNANT MELANOMA
     Dosage: 10 MG/KG, Q3W, DOSE REPORTED: 100 (UNIT NOT PROVIDED)
     Route: 042
     Dates: start: 20140218, end: 20140311
  11. DIPROSONE [Concomitant]
     Active Substance: BETAMETHASONE DIPROPIONATE
     Indication: PRURITUS
     Dosage: 1 APPLICATION, PRN
     Route: 061
     Dates: start: 20140429
  12. CORDARONE [Concomitant]
     Active Substance: AMIODARONE HYDROCHLORIDE
     Indication: ATRIAL FIBRILLATION
     Dosage: 200 MG, QD
     Route: 048
     Dates: start: 20140414
  13. TAREG [Concomitant]
     Active Substance: VALSARTAN
     Indication: HYPERTENSION
     Dosage: 40 MG, QD
     Route: 048
     Dates: start: 200301
  14. IXPRIM (ACETAMINOPHEN (+) TRAMADOL HYDROCHLORIDE) [Concomitant]
     Active Substance: ACETAMINOPHEN\TRAMADOL
     Indication: BACK PAIN
     Dosage: 0.67 TABLETS, TID
     Route: 048
     Dates: start: 20140311
  15. INEXIUM (ESOMEPRAZOLE MAGNESIUM) [Concomitant]
     Active Substance: ESOMEPRAZOLE MAGNESIUM
     Indication: PROPHYLAXIS AGAINST GASTROINTESTINAL ULCER
     Dosage: 40 MG, QD
     Route: 048
     Dates: start: 20140414
  16. ACUPAN [Concomitant]
     Active Substance: NEFOPAM HYDROCHLORIDE
     Indication: BACK PAIN
     Dosage: 1 AMPOULE, QID
     Route: 048
     Dates: start: 20140417

REACTIONS (2)
  - Lung infection [Fatal]
  - Pulmonary embolism [Not Recovered/Not Resolved]

NARRATIVE: CASE EVENT DATE: 20140605
